FAERS Safety Report 6379376-4 (Version None)
Quarter: 2009Q3

REPORT INFORMATION
  Report Type: 
  Country: None (occurrence: None)
  Receive Date: 20090928
  Receipt Date: 20090925
  Transmission Date: 20100115
  Serious: Yes (Other)
  Sender: FDA-Public Use
  Company Number: A0653190A

PATIENT
  Age: 56 Year
  Sex: Male
  Weight: 118.2 kg

DRUGS (3)
  1. AVANDIA [Suspect]
     Dosage: 4MG PER DAY
     Route: 048
     Dates: start: 20030101
  2. GLUCOTROL [Concomitant]
  3. METFORMIN HCL [Concomitant]

REACTIONS (4)
  - CARDIAC DISORDER [None]
  - CARDIAC FAILURE [None]
  - HEART VALVE INCOMPETENCE [None]
  - OEDEMA PERIPHERAL [None]
